FAERS Safety Report 5170453-2 (Version None)
Quarter: 2006Q4

REPORT INFORMATION
  Report Type: 
  Country: None (occurrence: None)
  Receive Date: 20061212
  Receipt Date: 20061206
  Transmission Date: 20070319
  Serious: Yes (Hospitalization)
  Sender: FDA-Public Use
  Company Number: US-ROXANE LABORATORIES, INC-2006-BP-14170RO

PATIENT
  Age: 67 Year
  Sex: Female

DRUGS (3)
  1. CITALOPRAM HYDROBROMIDE [Suspect]
     Indication: DEPRESSION
     Dosage: 20 MG/DAY
     Route: 048
  2. MIRTAZAPINE [Suspect]
     Indication: DEPRESSION
     Dosage: 15 MG QHS
     Route: 048
  3. LEVODOPA [Concomitant]
     Indication: PARKINSON'S DISEASE

REACTIONS (11)
  - ABDOMINAL PAIN [None]
  - AGITATION [None]
  - ANOREXIA [None]
  - BRADYKINESIA [None]
  - HYPONATRAEMIA [None]
  - INAPPROPRIATE ANTIDIURETIC HORMONE SECRETION [None]
  - MASKED FACIES [None]
  - NAUSEA [None]
  - ORAL INTAKE REDUCED [None]
  - TREMOR [None]
  - VOMITING [None]
